FAERS Safety Report 4796186-X (Version None)
Quarter: 2005Q4

REPORT INFORMATION
  Report Type: 
  Country: None (occurrence: None)
  Receive Date: 20051005
  Receipt Date: 20050912
  Transmission Date: 20060501
  Serious: Yes (Hospitalization)
  Sender: FDA-Public Use
  Company Number: 200510606BFR

PATIENT
  Age: 14 Year
  Sex: Male

DRUGS (4)
  1. CIPROFLOXACIN HCL [Suspect]
     Indication: ASCITES INFECTION
     Dosage: 750 MG, TOTAL DAILY, ORAL
     Route: 048
     Dates: start: 20010101
  2. CIPROFLOXACIN HCL [Suspect]
     Indication: PROPHYLAXIS
     Dosage: 750 MG, TOTAL DAILY, ORAL
     Route: 048
     Dates: start: 20010101
  3. PREDNISONE [Suspect]
     Dosage: TIW, ORAL
     Route: 048
     Dates: start: 19940101
  4. NEORAL [Suspect]
     Dosage: 120 + 80 MG, TOTAL, DAILY, ORAL
     Route: 048
     Dates: start: 20000101, end: 20010101

REACTIONS (5)
  - AGITATION [None]
  - CONDITION AGGRAVATED [None]
  - HEPATIC ENCEPHALOPATHY [None]
  - RENAL FAILURE ACUTE [None]
  - SPEECH DISORDER [None]
